FAERS Safety Report 6397852-5 (Version None)
Quarter: 2009Q4

REPORT INFORMATION
  Report Type: 
  Country: None (occurrence: None)
  Receive Date: 20091013
  Receipt Date: 20091006
  Transmission Date: 20100525
  Serious: Yes (Hospitalization)
  Sender: FDA-Public Use
  Company Number: US-BIOGENIDEC-2009BI025545

PATIENT
  Age: 50 Year
  Sex: Female

DRUGS (11)
  1. TYSABRI [Suspect]
     Indication: MULTIPLE SCLEROSIS
     Route: 042
     Dates: start: 20061001, end: 20090801
  2. BONIVA [Concomitant]
  3. BACLOFEN [Concomitant]
  4. MULTI-VITAMIN [Concomitant]
  5. STOOL SOFTENER [Concomitant]
  6. MIRALAX [Concomitant]
  7. LEXAPRO [Concomitant]
  8. DETROL LA [Concomitant]
  9. ZYRTEC [Concomitant]
  10. RHINOCORT [Concomitant]
  11. DULCOLAX [Concomitant]

REACTIONS (2)
  - ENCEPHALOPATHY [None]
  - URINARY TRACT INFECTION [None]
